FAERS Safety Report 10974010 (Version 1)
Quarter: 2015Q1

REPORT INFORMATION
  Report Type: Spontaneous
  Country: US (occurrence: None)
  Receive Date: 20150331
  Receipt Date: 20150331
  Transmission Date: 20150721
  Serious: Yes (Hospitalization)
  Sender: FDA-Public Use
  Company Number: None

PATIENT
  Age: 71 Year
  Sex: Male
  Weight: 81 kg

DRUGS (1)
  1. ATORVASTATIN [Suspect]
     Active Substance: ATORVASTATIN
     Indication: HYPERLIPIDAEMIA
     Route: 048
     Dates: start: 20141001, end: 20141202

REACTIONS (11)
  - Viral myositis [None]
  - Fluid overload [None]
  - Nausea [None]
  - Autoimmune disorder [None]
  - Chest pain [None]
  - Gastritis [None]
  - Vomiting [None]
  - Rhabdomyolysis [None]
  - Cellulitis [None]
  - Polymyositis [None]
  - Oesophagitis [None]

NARRATIVE: CASE EVENT DATE: 20141202
